FAERS Safety Report 5830764-1 (Version None)
Quarter: 2008Q3

REPORT INFORMATION
  Report Type: 
  Country: None (occurrence: None)
  Receive Date: 20080801
  Receipt Date: 20080313
  Transmission Date: 20090109
  Serious: No
  Sender: FDA-Public Use
  Company Number: US-BRISTOL-MYERS SQUIBB COMPANY-13981907

PATIENT
  Age: 77 Year
  Sex: Female
  Weight: 50 kg

DRUGS (14)
  1. COUMADIN [Suspect]
     Dosage: STARTED ON 10MG/DAY; THEN 4 1/2 TO 5 MG/DAY;
     Dates: start: 19780101
  2. SYNTHROID [Concomitant]
     Dosage: 1 DOSAGE FORM = .025 (NO UNITS SPECIFIED).
  3. VYTORIN [Concomitant]
  4. DIOVAN [Concomitant]
  5. HYDROCHLOROTHIAZIDE [Concomitant]
  6. PAMELOR [Concomitant]
  7. CALCIUM [Concomitant]
  8. CITRACAL [Concomitant]
  9. SEREVENT [Concomitant]
  10. CENTRUM SILVER [Concomitant]
  11. ASPIRIN [Concomitant]
  12. FLORICAL [Concomitant]
  13. CARDIZEM [Concomitant]
  14. VALIUM [Concomitant]

REACTIONS (4)
  - DRY SKIN [None]
  - ONYCHOCLASIS [None]
  - PRURITUS [None]
  - SKIN WRINKLING [None]
